FAERS Safety Report 4694250-7 (Version None)
Quarter: 2005Q2

REPORT INFORMATION
  Report Type: 
  Country: None (occurrence: None)
  Receive Date: 20050620
  Receipt Date: 20050610
  Transmission Date: 20051028
  Serious: Yes (Hospitalization)
  Sender: FDA-Public Use
  Company Number: FR-RB-1740-2005

PATIENT
  Age: 38 Year
  Sex: Male
  Weight: 60 kg

DRUGS (2)
  1. BUPRENORPHINE HCL [Suspect]
     Indication: DRUG USE FOR UNKNOWN INDICATION
     Route: 048
     Dates: start: 20040101
  2. BUPRENORPHINE HCL [Suspect]
     Dosage: 6 - 8 MG
     Route: 048

REACTIONS (4)
  - LUNG INFECTION [None]
  - NAUSEA [None]
  - RESPIRATORY DISORDER [None]
  - VOMITING [None]
